FAERS Safety Report 7269211-4 (Version None)
Quarter: 2011Q1

REPORT INFORMATION
  Report Type: 
  Country: None (occurrence: None)
  Receive Date: 20110124
  Receipt Date: 20110113
  Transmission Date: 20110831
  Serious: Yes (Other)
  Sender: FDA-Public Use
  Company Number: DSA_44674_2011

PATIENT
  Age: 33 Year
  Sex: Female

DRUGS (2)
  1. RESTORIL [Concomitant]
  2. XENAZINE [Suspect]
     Indication: DYSTONIA
     Dosage: 12.5 MG BID, ORAL
     Route: 048
     Dates: start: 20100501

REACTIONS (11)
  - OROPHARYNGEAL PAIN [None]
  - DROOLING [None]
  - TARDIVE DYSKINESIA [None]
  - WEIGHT DECREASED [None]
  - CONDITION AGGRAVATED [None]
  - DEPRESSION [None]
  - HEADACHE [None]
  - MUSCLE SPASMS [None]
  - MUSCULOSKELETAL STIFFNESS [None]
  - GRIMACING [None]
  - FATIGUE [None]
